FAERS Safety Report 13815383 (Version 1)
Quarter: 2017Q3

REPORT INFORMATION
  Report Type: Spontaneous
  Country: US (occurrence: US)
  Receive Date: 20170731
  Receipt Date: 20170731
  Transmission Date: 20171127
  Serious: Yes (Hospitalization)
  Sender: FDA-Public Use
  Company Number: None

PATIENT
  Age: 64 Year
  Sex: Female
  Weight: 58.8 kg

DRUGS (2)
  1. FOLFIRI [Suspect]
     Active Substance: FLUOROURACIL\IRINOTECAN\LEUCOVORIN
     Indication: ADENOCARCINOMA OF APPENDIX
     Route: 041
     Dates: start: 20170726, end: 20170728
  2. OXALI (OXALIPLATIN) [Suspect]
     Active Substance: OXALIPLATIN
     Indication: ADENOCARCINOMA OF APPENDIX
     Dosage: 55 MG/SQ M ONCE EVERY 2 WEEKS
     Route: 033
     Dates: start: 20170726, end: 20170726

REACTIONS (5)
  - Complication associated with device [None]
  - Abdominal pain [None]
  - Catheter site pain [None]
  - Abdominal distension [None]
  - Constipation [None]

NARRATIVE: CASE EVENT DATE: 20170728
